FAERS Safety Report 25750323 (Version 1)
Quarter: 2025Q3

REPORT INFORMATION
  Report Type: Spontaneous
  Country: US (occurrence: US)
  Receive Date: 20250902
  Receipt Date: 20250902
  Transmission Date: 20251021
  Serious: Yes (Other)
  Sender: GERON CORP
  Company Number: US-GERON CORPORATION-US-GER-25-000209

PATIENT

DRUGS (1)
  1. RYTELO [Suspect]
     Active Substance: IMETELSTAT SODIUM
     Indication: Myelodysplastic syndrome
     Route: 065

REACTIONS (2)
  - Cytopenia [Unknown]
  - Neutropenia [Recovered/Resolved]
